FAERS Safety Report 5656234-1 (Version None)
Quarter: 2008Q1

REPORT INFORMATION
  Report Type: 
  Country: None (occurrence: None)
  Receive Date: 20080305
  Receipt Date: 20080219
  Transmission Date: 20080703
  Serious: Yes (Other)
  Sender: FDA-Public Use
  Company Number: 2008S1000656

PATIENT
  Age: 70 Year
  Sex: Male

DRUGS (2)
  1. TERBINAFIN DURA (NO PREF. NAME) [Suspect]
     Indication: DRUG USE FOR UNKNOWN INDICATION
     Dosage: 250 MG; ORAL
     Route: 048
  2. ITRACONAZOLE [Concomitant]

REACTIONS (1)
  - POLYNEUROPATHY [None]
